FAERS Safety Report 9546593 (Version 1)
Quarter: 2013Q3

REPORT INFORMATION
  Report Type: Spontaneous
  Country: US (occurrence: US)
  Receive Date: 20130924
  Receipt Date: 20130924
  Transmission Date: 20140515
  Serious: Yes (Other)
  Sender: FDA-Public Use
  Company Number: US-AMGEN-USASP2013066401

PATIENT
  Age: 45 Year
  Sex: Female

DRUGS (2)
  1. ENBREL [Suspect]
     Indication: ANKYLOSING SPONDYLITIS
     Dosage: 50 MG, QWK
     Route: 065
     Dates: start: 2011
  2. METHOTREXATE [Concomitant]
     Dosage: UNK

REACTIONS (16)
  - Grand mal convulsion [Not Recovered/Not Resolved]
  - Mental impairment [Not Recovered/Not Resolved]
  - Eye pain [Recovered/Resolved]
  - Neck pain [Recovered/Resolved]
  - Back pain [Not Recovered/Not Resolved]
  - Speech disorder [Not Recovered/Not Resolved]
  - Memory impairment [Not Recovered/Not Resolved]
  - Abasia [Not Recovered/Not Resolved]
  - Mood swings [Not Recovered/Not Resolved]
  - Somnolence [Not Recovered/Not Resolved]
  - Arthritis [Not Recovered/Not Resolved]
  - Myalgia [Not Recovered/Not Resolved]
  - Arthralgia [Not Recovered/Not Resolved]
  - Pain in extremity [Not Recovered/Not Resolved]
  - Mobility decreased [Not Recovered/Not Resolved]
  - Condition aggravated [Unknown]
